FAERS Safety Report 5675056-9 (Version None)
Quarter: 2008Q2

REPORT INFORMATION
  Report Type: 
  Country: None (occurrence: None)
  Receive Date: 20080303
  Receipt Date: 20071210
  Transmission Date: 20081010
  Serious: Yes (Death)
  Sender: FDA-Public Use
  Company Number: RB-8758-2007

PATIENT
  Age: 18 Year
  Sex: Male

DRUGS (1)
  1. SUBOXONE [Suspect]
     Indication: DRUG USE FOR UNKNOWN INDICATION
     Dosage: DOSAGE TAKEN IS UNKNOWN, REPORT INDICATES INGESTION OF SUBOXONE, EXACT ROUTE UNKNOWN
     Dates: end: 20060101

REACTIONS (1)
  - DEATH [None]
